FAERS Safety Report 7323412-5 (Version None)
Quarter: 2011Q1

REPORT INFORMATION
  Report Type: 
  Country: None (occurrence: None)
  Receive Date: 20110301
  Receipt Date: 20110216
  Transmission Date: 20110831
  Serious: Yes (Death, Hospitalization)
  Sender: FDA-Public Use
  Company Number: FR-PFIZER INC-2007061011

PATIENT
  Age: 17 Year
  Sex: Male

DRUGS (21)
  1. METRONIDAZOLE [Suspect]
     Dosage: 500 KIU
     Route: 042
     Dates: start: 20070511, end: 20070524
  2. AMSALYO [Suspect]
     Indication: ACUTE MYELOID LEUKAEMIA
     Dosage: 174 MG CONSOLIDATION
     Route: 042
     Dates: start: 20070416, end: 20070518
  3. METHOTREXATE MERCK [Suspect]
     Indication: ACUTE MYELOID LEUKAEMIA
     Dosage: 15 MG, SINGLE
     Route: 037
     Dates: start: 20070427, end: 20070427
  4. TIENAM [Suspect]
     Route: 042
     Dates: start: 20070518, end: 20070520
  5. PURINETHOL [Suspect]
     Route: 048
     Dates: start: 20070423, end: 20070423
  6. TAZOCILLINE [Suspect]
     Route: 042
     Dates: start: 20070430, end: 20070520
  7. CANCIDAS [Suspect]
     Indication: BRONCHOPULMONARY ASPERGILLOSIS
     Dosage: DAILY
     Route: 042
     Dates: start: 20070519, end: 20070523
  8. VFEND [Suspect]
     Indication: BRONCHOPULMONARY ASPERGILLOSIS
     Dosage: 300 MG, 2X/DAY
     Route: 042
     Dates: start: 20070516, end: 20070519
  9. METHOTREXATE MERCK [Suspect]
     Dosage: 15 MG, SINGLE
     Route: 037
     Dates: start: 20070509, end: 20070509
  10. FORTUM [Suspect]
     Dosage: 2 G, 2X/DAY
     Route: 042
     Dates: start: 20070520, end: 20070524
  11. VANCOMYCINE [Suspect]
     Dosage: UNK
     Route: 042
     Dates: start: 20070511, end: 20070523
  12. HYDREA [Suspect]
     Indication: ACUTE MYELOID LEUKAEMIA
     Dosage: 6 DF PER DAY
     Route: 048
     Dates: start: 20070424, end: 20070424
  13. AMIKLIN [Suspect]
     Dosage: 1 G, 1X/DAY
     Route: 042
     Dates: start: 20070520, end: 20070523
  14. DAUNORUBICIN [Concomitant]
     Indication: ACUTE MYELOID LEUKAEMIA
     Dosage: 104 MG INDUCTION
     Route: 042
     Dates: start: 20070424, end: 20070524
  15. CYTARABINE [Suspect]
     Dosage: 40 MG, SINGLE
     Route: 037
     Dates: start: 20070509, end: 20070509
  16. CYTARABINE [Suspect]
     Dosage: 5220 MG, 2X/DAY CONSOLIDATION
     Route: 042
     Dates: start: 20070516, end: 20070518
  17. HYDREA [Suspect]
     Dosage: 3 DF PER DAY
     Route: 048
     Dates: start: 20070425, end: 20070425
  18. CYTARABINE [Suspect]
     Indication: ACUTE MYELOID LEUKAEMIA
     Dosage: 348 MG INDUCTION
     Route: 042
     Dates: start: 20070424, end: 20070424
  19. CYTARABINE [Suspect]
     Dosage: 40 MG, SINGLE
     Route: 037
     Dates: start: 20070427, end: 20070427
  20. MITOXANTRONE [Suspect]
     Indication: ACUTE MYELOID LEUKAEMIA
     Dosage: 20 MG, 1X/DAY
     Route: 042
     Dates: start: 20070425, end: 20070429
  21. FUNGIZONE [Concomitant]
     Dosage: UNK
     Route: 042
     Dates: start: 20070515, end: 20070516

REACTIONS (4)
  - ARRHYTHMIA [None]
  - CONVULSION [None]
  - CARDIO-RESPIRATORY ARREST [None]
  - CEREBELLAR SYNDROME [None]
